FAERS Safety Report 8768250 (Version 2)
Quarter: 2013Q4

REPORT INFORMATION
  Report Type: Spontaneous
  Country: IL (occurrence: IL)
  Receive Date: 20120904
  Receipt Date: 20131031
  Transmission Date: 20140711
  Serious: Yes (Hospitalization)
  Sender: FDA-Public Use
  Company Number: IL-009507513-1208ISR009716

PATIENT
  Age: 60 Year
  Sex: Male
  Weight: 70 kg

DRUGS (7)
  1. JANUVIA [Suspect]
     Indication: DIABETES MELLITUS
     Dosage: 50 MG, BID
     Route: 048
     Dates: start: 20120601
  2. PEGINTERFERON ALFA-2A [Suspect]
     Dosage: 180 MICROGRAM, QW
     Route: 058
     Dates: start: 20120710
  3. COPEGUS [Suspect]
     Dosage: 1000 MG, QD
     Route: 048
     Dates: start: 20120710
  4. TELAPREVIR [Suspect]
     Dosage: 2250 MG, QD
     Route: 048
     Dates: start: 20120710
  5. DERALIN [Concomitant]
     Indication: VARICES OESOPHAGEAL
     Dosage: 80 MG, QD
     Route: 048
  6. ENALADEX [Concomitant]
     Indication: HYPERTENSION
     Dosage: 5 MG, QD
     Route: 048
     Dates: start: 20110913
  7. GLUCOPHAGE [Concomitant]
     Indication: DIABETES MELLITUS
     Dosage: 850 MG, BID
     Route: 048
     Dates: start: 20111211

REACTIONS (2)
  - Anaemia [Recovering/Resolving]
  - Inappropriate schedule of drug administration [Unknown]
